FAERS Safety Report 24010899 (Version 1)
Quarter: 2024Q2

REPORT INFORMATION
  Report Type: Spontaneous
  Country: US (occurrence: None)
  Receive Date: 20240624
  Receipt Date: 20240624
  Transmission Date: 20240716
  Serious: Yes (Disabling)
  Sender: FDA-Public Use
  Company Number: None

PATIENT
  Age: 62 Year
  Sex: Female
  Weight: 80.1 kg

DRUGS (1)
  1. ATORVASTATIN [Suspect]
     Active Substance: ATORVASTATIN
     Indication: Deafness neurosensory
     Dates: end: 20240401

REACTIONS (5)
  - Deafness [None]
  - Tinnitus [None]
  - Dizziness [None]
  - Deafness neurosensory [None]
  - Disease progression [None]

NARRATIVE: CASE EVENT DATE: 20230604
